FAERS Safety Report 6008197-7 (Version None)
Quarter: 2008Q4

REPORT INFORMATION
  Report Type: 
  Country: None (occurrence: None)
  Receive Date: 20081217
  Receipt Date: 20080722
  Transmission Date: 20090506
  Serious: No
  Sender: FDA-Public Use
  Company Number: US-ASTRAZENECA-2008UW15291

PATIENT
  Age: 65 Year
  Sex: Female
  Weight: 73.5 kg

DRUGS (4)
  1. CRESTOR [Suspect]
     Indication: BLOOD CHOLESTEROL INCREASED
     Dosage: 5 MG, 20 MG
     Route: 048
     Dates: start: 20080701
  2. CRESTOR [Suspect]
     Indication: CORONARY ARTERY DISEASE
     Dosage: 5 MG, 20 MG
     Route: 048
     Dates: start: 20080701
  3. SYNTHROID [Concomitant]
  4. EFFEXOR XR [Concomitant]

REACTIONS (7)
  - BRADYPHRENIA [None]
  - DIZZINESS [None]
  - EYE DISORDER [None]
  - MOVEMENT DISORDER [None]
  - PAIN [None]
  - PALPITATIONS [None]
  - SKIN DISORDER [None]
